FAERS Safety Report 8378174-X (Version None)
Quarter: 2012Q2

REPORT INFORMATION
  Report Type: 
  Country: None (occurrence: None)
  Receive Date: 20120522
  Receipt Date: 20120516
  Transmission Date: 20120825
  Serious: No
  Sender: FDA-Public Use
  Company Number: US-PFIZER INC-2012119781

PATIENT
  Sex: Female
  Weight: 81.633 kg

DRUGS (2)
  1. GLUCOPHAGE [Concomitant]
     Indication: INSULIN RESISTANCE
     Dosage: UNK
  2. LEVOXYL [Suspect]
     Indication: HYPOTHYROIDISM
     Dosage: 100 UG, 1X/DAY
     Route: 048
     Dates: start: 20050101

REACTIONS (1)
  - THYROID FUNCTION TEST ABNORMAL [None]
